FAERS Safety Report 23533645 (Version 2)
Quarter: 2024Q1

REPORT INFORMATION
  Report Type: Spontaneous
  Country: US (occurrence: US)
  Receive Date: 20240216
  Receipt Date: 20240304
  Transmission Date: 20240409
  Serious: Yes (Other)
  Sender: FDA-Public Use
  Company Number: US-GILEAD-2024-0661895

PATIENT
  Age: 62 Year
  Sex: Female

DRUGS (1)
  1. YESCARTA [Suspect]
     Active Substance: AXICABTAGENE CILOLEUCEL
     Indication: Diffuse large B-cell lymphoma
     Route: 065

REACTIONS (5)
  - Large granular lymphocytosis [Unknown]
  - Thrombocytopenia [Unknown]
  - Anaemia [Unknown]
  - Cytokine release syndrome [Unknown]
  - Neutropenia [Unknown]
